FAERS Safety Report 14732106 (Version 1)
Quarter: 2018Q2

REPORT INFORMATION
  Report Type: Spontaneous
  Country: US (occurrence: US)
  Receive Date: 20180408
  Receipt Date: 20180408
  Transmission Date: 20180711
  Serious: Yes (Hospitalization)
  Sender: FDA-Public Use
  Company Number: US-BRISTOL-MYERS SQUIBB COMPANY-BMS-2018-031770

PATIENT
  Sex: Male

DRUGS (1)
  1. BARACLUDE [Suspect]
     Active Substance: ENTECAVIR
     Indication: LIVER TRANSPLANT
     Dosage: UNAVAILABLE
     Route: 065

REACTIONS (5)
  - Rib fracture [Unknown]
  - Fall [Unknown]
  - Product use in unapproved indication [Unknown]
  - Clavicle fracture [Unknown]
  - Upper limb fracture [Unknown]
